FAERS Safety Report 4925802-4 (Version None)
Quarter: 2006Q1

REPORT INFORMATION
  Report Type: 
  Country: None (occurrence: None)
  Receive Date: 20060228
  Receipt Date: 20050324
  Transmission Date: 20060701
  Serious: No
  Sender: FDA-Public Use
  Company Number: US-GLAXOSMITHKLINE-A0551099A

PATIENT
  Age: 57 Year
  Sex: Female

DRUGS (5)
  1. LAMICTAL [Suspect]
     Route: 048
     Dates: start: 20050208
  2. ZITHROMAX [Suspect]
     Indication: DRUG USE FOR UNKNOWN INDICATION
     Dosage: 500MG SINGLE DOSE
     Route: 065
     Dates: start: 20050312, end: 20050312
  3. DILANTIN [Concomitant]
  4. CALCIUM GLUCONATE [Concomitant]
  5. LEVOXYL [Concomitant]

REACTIONS (1)
  - RASH [None]
